FAERS Safety Report 11434426 (Version 1)
Quarter: 2015Q3

REPORT INFORMATION
  Report Type: Spontaneous
  Country: US (occurrence: US)
  Receive Date: 20150831
  Receipt Date: 20150831
  Transmission Date: 20151125
  Serious: Yes (Other)
  Sender: FDA-Public Use
  Company Number: US-PFIZER INC-2015254168

PATIENT

DRUGS (2)
  1. CHLORPROPAMIDE. [Suspect]
     Active Substance: CHLORPROPAMIDE
     Dosage: 250 MG, 2X/DAY
  2. CHLORPROMAZINE. [Suspect]
     Active Substance: CHLORPROMAZINE
     Dosage: 200 MG, 2X/DAY

REACTIONS (5)
  - Muscle rigidity [Unknown]
  - Mental status changes [Unknown]
  - Seizure [Unknown]
  - Drug dispensing error [Unknown]
  - Hypoglycaemia [Unknown]
